FAERS Safety Report 7230866-1 (Version None)
Quarter: 2011Q1

REPORT INFORMATION
  Report Type: 
  Country: None (occurrence: None)
  Receive Date: 20110118
  Receipt Date: 20110110
  Transmission Date: 20110831
  Serious: Yes (Congenital Anomaly)
  Sender: FDA-Public Use
  Company Number: BR-ROCHE-692331

PATIENT

DRUGS (1)
  1. ROACUTAN [Suspect]
     Route: 064
     Dates: start: 20091201, end: 20100101

REACTIONS (1)
  - EAR MALFORMATION [None]
